FAERS Safety Report 4343358-4 (Version None)
Quarter: 2004Q1

REPORT INFORMATION
  Report Type: 
  Country: None (occurrence: None)
  Receive Date: 20040325
  Receipt Date: 20040129
  Transmission Date: 20041129
  Serious: No
  Sender: FDA-Public Use
  Company Number: USA040157279

PATIENT
  Age: 61 Year
  Sex: Male

DRUGS (2)
  1. FORTEO [Suspect]
  2. METHOTREXATE [Concomitant]

REACTIONS (9)
  - ANOREXIA [None]
  - CHILLS [None]
  - COUGH [None]
  - DIARRHOEA [None]
  - DYSPNOEA [None]
  - FATIGUE [None]
  - INSOMNIA [None]
  - TREMOR [None]
  - VOMITING [None]
